FAERS Safety Report 8471726-8 (Version None)
Quarter: 2012Q2

REPORT INFORMATION
  Report Type: 
  Country: None (occurrence: None)
  Receive Date: 20120627
  Receipt Date: 20120622
  Transmission Date: 20120825
  Serious: Yes (Hospitalization)
  Sender: FDA-Public Use
  Company Number: JP-GLAXOSMITHKLINE-B0810517A

PATIENT
  Age: 55 Year
  Sex: Female

DRUGS (4)
  1. NORVASC [Concomitant]
     Indication: HYPERTENSION
     Dosage: 5MG PER DAY
     Route: 048
  2. REMITCH (NALFURAFINE HYDROCHLORIDE) [Concomitant]
     Indication: PRURITUS
     Dosage: 2.5MCG PER DAY
     Route: 048
  3. CRESTOR [Concomitant]
     Indication: HYPERLIPIDAEMIA
     Dosage: 2.5MG PER DAY
     Route: 048
  4. VALTREX [Suspect]
     Indication: HERPES ZOSTER
     Dosage: 500MG PER DAY
     Route: 048
     Dates: start: 20120619, end: 20120619

REACTIONS (3)
  - VOMITING [None]
  - MALAISE [None]
  - DIZZINESS [None]
